FAERS Safety Report 23849032 (Version 1)
Quarter: 2024Q2

REPORT INFORMATION
  Report Type: Spontaneous
  Country: US (occurrence: US)
  Receive Date: 20240513
  Receipt Date: 20240513
  Transmission Date: 20240715
  Serious: No
  Sender: FDA-Public Use
  Company Number: US-SA-SAC20240506000620

PATIENT
  Sex: Male

DRUGS (1)
  1. DUPIXENT [Suspect]
     Active Substance: DUPILUMAB
     Indication: Eczema
     Dosage: 2 SYRINGES (300MG SYRINGE EACH) ONE TIME A MONTH AND 1 SYRINGE ANOTHER TIME A MONTH (3 SYRINGES PER
     Route: 058
     Dates: start: 2022

REACTIONS (1)
  - Off label use [Unknown]
